FAERS Safety Report 15847162 (Version 1)
Quarter: 2019Q1

REPORT INFORMATION
  Report Type: Spontaneous
  Country: KR (occurrence: KR)
  Receive Date: 20190121
  Receipt Date: 20190121
  Transmission Date: 20190417
  Serious: Yes (Death, Hospitalization, Other)
  Sender: FDA-Public Use
  Company Number: KR-ASTELLAS-2019US002379

PATIENT
  Age: 10 Year
  Sex: Male

DRUGS (4)
  1. PREDNISOLONE. [Suspect]
     Active Substance: PREDNISOLONE
     Route: 065
  2. TACROLIMUS. [Suspect]
     Active Substance: TACROLIMUS
     Indication: RENAL TRANSPLANT
     Dosage: UNK UNK, UNKNOWN FREQ.
     Route: 065
  3. PREDNISOLONE. [Suspect]
     Active Substance: PREDNISOLONE
     Indication: RENAL TRANSPLANT
     Route: 065
  4. MYCOPHENOLATE MOFETIL. [Suspect]
     Active Substance: MYCOPHENOLATE MOFETIL
     Indication: RENAL TRANSPLANT
     Dosage: UNK UNK, UNKNOWN FREQ.
     Route: 065

REACTIONS (11)
  - Tubulointerstitial nephritis [Unknown]
  - JC virus infection [Unknown]
  - Cytomegalovirus test positive [Unknown]
  - Pneumocystis jirovecii pneumonia [Unknown]
  - Urosepsis [Unknown]
  - Renal failure [Unknown]
  - Meningitis [Unknown]
  - Cystitis haemorrhagic [Unknown]
  - Bone marrow failure [Unknown]
  - Adenovirus infection [Fatal]
  - Generalised tonic-clonic seizure [Unknown]
